FAERS Safety Report 10384938 (Version 3)
Quarter: 2014Q3

REPORT INFORMATION
  Report Type: Spontaneous
  Country: IE (occurrence: IE)
  Receive Date: 20140814
  Receipt Date: 20140929
  Transmission Date: 20150326
  Serious: Yes (Other)
  Sender: FDA-Public Use
  Company Number: IE-AMGEN-IRLSP2014061306

PATIENT
  Age: 74 Year
  Sex: Male
  Weight: 62.8 kg

DRUGS (13)
  1. CARDURAXL [Concomitant]
     Dosage: 8 MG, UNK
     Route: 048
  2. ARANESP [Suspect]
     Active Substance: DARBEPOETIN ALFA
     Indication: RENAL FAILURE CHRONIC
     Dosage: 60 MCG, FORTNIGHTLY
     Route: 058
     Dates: start: 20120518
  3. AMLODIPINE [Concomitant]
     Active Substance: AMLODIPINE BESYLATE
  4. LIPITOR [Concomitant]
     Active Substance: ATORVASTATIN CALCIUM
     Dosage: 20 MG, UNK
  5. STILNOCT [Concomitant]
     Active Substance: ZOLPIDEM TARTRATE
  6. PLAVIX [Concomitant]
     Active Substance: CLOPIDOGREL BISULFATE
     Dosage: 75 MG, UNK
  7. NEBIVOLOL [Concomitant]
     Active Substance: NEBIVOLOL
  8. CO DIOVAN [Concomitant]
  9. GALFER [Concomitant]
     Active Substance: IRON
  10. LANSOPRAZOLE. [Concomitant]
     Active Substance: LANSOPRAZOLE
     Dosage: 30 MG, UNK
  11. PANADOL                            /00020001/ [Concomitant]
  12. ZOTON [Concomitant]
     Active Substance: LANSOPRAZOLE
  13. ASPIRIN                            /00002701/ [Concomitant]
     Active Substance: ASPIRIN

REACTIONS (1)
  - Haemoglobin abnormal [Unknown]

NARRATIVE: CASE EVENT DATE: 20140811
